FAERS Safety Report 8858531 (Version 1)
Quarter: 2012Q4

REPORT INFORMATION
  Report Type: 
  Country: US (occurrence: US)
  Receive Date: 20121024
  Receipt Date: 20121024
  Transmission Date: 20130627
  Serious: Yes (Other)
  Sender: FDA-Public Use
  Company Number: US-ROCHE-1147690

PATIENT
  Age: 13 Year
  Sex: Female

DRUGS (6)
  1. BEVACIZUMAB [Suspect]
     Indication: EWING^S SARCOMA
     Route: 050
  2. GEMCITABINE HYDROCHLORIDE [Suspect]
     Indication: EWING^S SARCOMA
     Route: 050
  3. DOCETAXEL [Suspect]
     Indication: EWING^S SARCOMA
     Route: 050
  4. IRINOTECAN HYDROCHLORIDE [Concomitant]
  5. TEMOZOLOMIDE [Concomitant]
  6. SUNITINIB [Concomitant]

REACTIONS (2)
  - Bone marrow failure [Unknown]
  - Epistaxis [Unknown]
